FAERS Safety Report 7893559-3 (Version None)
Quarter: 2011Q4

REPORT INFORMATION
  Report Type: 
  Country: None (occurrence: None)
  Receive Date: 20111104
  Receipt Date: 20111025
  Transmission Date: 20120403
  Serious: Yes (Other)
  Sender: FDA-Public Use
  Company Number: CA-JNJFOC-20111101107

PATIENT
  Sex: Female
  Weight: 72 kg

DRUGS (1)
  1. REMICADE [Suspect]
     Indication: CROHN'S DISEASE
     Route: 042
     Dates: start: 20080101

REACTIONS (5)
  - VAGINAL NEOPLASM [None]
  - VAGINAL DISCHARGE [None]
  - ABNORMAL FAECES [None]
  - COITAL BLEEDING [None]
  - ECZEMA [None]
